FAERS Safety Report 24019437 (Version 2)
Quarter: 2024Q3

REPORT INFORMATION
  Report Type: Spontaneous
  Country: DE (occurrence: DE)
  Receive Date: 20240627
  Receipt Date: 20240702
  Transmission Date: 20241016
  Serious: Yes (Life-Threatening, Hospitalization)
  Sender: INSUD PHARMA
  Company Number: DE-MLMSERVICE-20240607-PI091170-00312-1

PATIENT
  Age: 38 Year
  Sex: Female

DRUGS (1)
  1. TESTOSTERONE [Suspect]
     Active Substance: TESTOSTERONE
     Indication: Transgender hormonal therapy
     Dosage: 250 MILLIGRAM, 1Q2W
     Route: 059

REACTIONS (1)
  - Myocarditis [Recovered/Resolved]
